FAERS Safety Report 18678893 (Version 1)
Quarter: 2020Q4

REPORT INFORMATION
  Report Type: Report from Study
  Country: None (occurrence: FR)
  Receive Date: 20201230
  Receipt Date: 20201230
  Transmission Date: 20210114
  Serious: Yes (Other)
  Sender: FDA-Public Use
  Company Number: FR-ABBVIE-20K-056-3708303-00

PATIENT
  Age: 61 Year
  Sex: Male

DRUGS (3)
  1. DUODOPA [Suspect]
     Active Substance: CARBIDOPA\LEVODOPA
     Dosage: MD:16ML, CONTINUOUS DOSE: FROM 7H-12H:5.6ML, FROM 12H-21H: 5.7ML
     Route: 050
     Dates: start: 202012, end: 202012
  2. DUODOPA [Suspect]
     Active Substance: CARBIDOPA\LEVODOPA
     Indication: PARKINSON^S DISEASE
     Dosage: MD:16ML, CONTINUOUS DOSE: FROM 7H-12H:5.6ML, FROM 12H-21H: 5.7ML
     Route: 050
     Dates: start: 202009, end: 202012
  3. DUODOPA [Suspect]
     Active Substance: CARBIDOPA\LEVODOPA
     Dosage: MD:16ML, CONTINUOUS DOSE: FROM 7H-12H:5.6ML, FROM 12H-21H: 5.8ML
     Route: 050
     Dates: start: 20201223

REACTIONS (7)
  - Balance disorder [Not Recovered/Not Resolved]
  - Hypotonia [Not Recovered/Not Resolved]
  - Fall [Not Recovered/Not Resolved]
  - Speech disorder [Not Recovered/Not Resolved]
  - Asthenia [Not Recovered/Not Resolved]
  - Therapeutic product effect decreased [Not Recovered/Not Resolved]
  - Restlessness [Not Recovered/Not Resolved]

NARRATIVE: CASE EVENT DATE: 20201223
